FAERS Safety Report 6464736-3 (Version None)
Quarter: 2009Q4

REPORT INFORMATION
  Report Type: 
  Country: None (occurrence: None)
  Receive Date: 20091201
  Receipt Date: 20091120
  Transmission Date: 20100525
  Serious: Yes (Life-Threatening)
  Sender: FDA-Public Use
  Company Number: CZ-JNJFOC-20091106787

PATIENT
  Age: 17 Year
  Sex: Male

DRUGS (8)
  1. REMICADE [Suspect]
     Dosage: ONE INFUSION AFTER INDUCTION ON AN UNSPECIFIED DATE
     Route: 042
     Dates: start: 20050101, end: 20091013
  2. REMICADE [Suspect]
     Indication: CROHN'S DISEASE
     Route: 042
     Dates: start: 20050101, end: 20091013
  3. METRONIDAZOL [Concomitant]
     Route: 042
  4. FERRLECIT [Concomitant]
     Route: 042
  5. IMURAN [Concomitant]
     Route: 048
  6. PENTASA [Concomitant]
     Route: 048
  7. MIRTAZAPINE [Concomitant]
     Route: 048
  8. ACIDUM FOLICUM [Concomitant]
     Dosage: DOSE: 3 TBL.

REACTIONS (7)
  - DYSPNOEA [None]
  - ERYTHEMA [None]
  - HYPERSENSITIVITY [None]
  - INFUSION RELATED REACTION [None]
  - PRURITUS [None]
  - SWELLING FACE [None]
  - TACHYCARDIA [None]
